FAERS Safety Report 4586108-9 (Version None)
Quarter: 2005Q1

REPORT INFORMATION
  Report Type: 
  Country: None (occurrence: None)
  Receive Date: 20050125
  Receipt Date: 20041021
  Transmission Date: 20050727
  Serious: No
  Sender: FDA-Public Use
  Company Number: USA041081311

PATIENT
  Age: 85 Year
  Sex: Female
  Weight: 55 kg

DRUGS (6)
  1. FORTEO [Suspect]
     Indication: OSTEOPOROSIS
     Dosage: 20 UG/1 DAY
     Dates: start: 20040701
  2. HYDROCHLOROTHIAZIDE [Concomitant]
  3. MULTIVITAMIN [Concomitant]
  4. LORAZEPAM [Concomitant]
  5. VITAMIN B6 [Concomitant]
  6. ALLEGRA [Concomitant]

REACTIONS (7)
  - ARTHRALGIA [None]
  - DIFFICULTY IN WALKING [None]
  - DIZZINESS [None]
  - FATIGUE [None]
  - HICCUPS [None]
  - MUSCLE SPASMS [None]
  - NAUSEA [None]
